FAERS Safety Report 7801929-4 (Version None)
Quarter: 2011Q4

REPORT INFORMATION
  Report Type: 
  Country: None (occurrence: None)
  Receive Date: 20111007
  Receipt Date: 20111003
  Transmission Date: 20120403
  Serious: Yes (Other)
  Sender: FDA-Public Use
  Company Number: ES-ABBOTT-10P-221-0802445-00

PATIENT
  Sex: Male

DRUGS (1)
  1. DUODOPA [Suspect]
     Indication: PARKINSON'S DISEASE
     Dosage: DAILY DOSE:  UNKNOWN, ROUTE: DUODENAL INFUSION
     Route: 050

REACTIONS (8)
  - PARAESTHESIA [None]
  - BLOOD FOLATE DECREASED [None]
  - DEVICE OCCLUSION [None]
  - DYSKINESIA [None]
  - VITAMIN B12 DECREASED [None]
  - SOMNOLENCE [None]
  - WEIGHT DECREASED [None]
  - PERIPHERAL SENSORY NEUROPATHY [None]
